FAERS Safety Report 22343678 (Version 1)
Quarter: 2023Q2

REPORT INFORMATION
  Report Type: Spontaneous
  Country: JP (occurrence: JP)
  Receive Date: 20230519
  Receipt Date: 20230519
  Transmission Date: 20230722
  Serious: Yes (Death)
  Sender: FDA-Public Use
  Company Number: JP-SUN PHARMACEUTICAL INDUSTRIES LTD-2023RR-388804

PATIENT
  Age: 52 Year
  Sex: Female

DRUGS (6)
  1. PEMETREXED [Suspect]
     Active Substance: PEMETREXED
     Indication: Metastases to lung
     Dosage: 500 MILLIGRAM PER CUBIC METRE, EVERY 3 WEEKS
     Route: 065
  2. DOCETAXEL [Suspect]
     Active Substance: DOCETAXEL
     Indication: Metastases to lung
     Dosage: 60 MILLIGRAM PER CUBIC METRE, EVERY 3 WEEKS
     Route: 065
  3. AFATINIB [Suspect]
     Active Substance: AFATINIB
     Indication: Metastases to lung
     Dosage: 40 MILLIGRAM, DAILY
     Route: 065
  4. GEFITINIB [Suspect]
     Active Substance: GEFITINIB
     Indication: Metastases to lung
     Dosage: 250 MILLIGRAM, DAILY
     Route: 065
  5. CISPLATIN [Suspect]
     Active Substance: CISPLATIN
     Indication: Metastases to lung
     Dosage: 75 MILLIGRAM PER CUBIC METRE, EVERY 3 WEEKS
     Route: 065
  6. CARBOPLATIN [Suspect]
     Active Substance: CARBOPLATIN
     Indication: Metastases to lung
     Dosage: UNK
     Route: 065

REACTIONS (6)
  - Disease progression [Fatal]
  - Nausea [Fatal]
  - Diarrhoea [Fatal]
  - Skin disorder [Fatal]
  - Conjunctivitis [Fatal]
  - Drug ineffective [Fatal]
